FAERS Safety Report 4297749-0 (Version None)
Quarter: 2004Q1

REPORT INFORMATION
  Report Type: 
  Country: None (occurrence: None)
  Receive Date: 20040126
  Receipt Date: 20031103
  Transmission Date: 20041129
  Serious: No
  Sender: FDA-Public Use
  Company Number: USA031151554

PATIENT
  Age: 15 Year
  Sex: Female
  Weight: 66 kg

DRUGS (3)
  1. STRATTERA [Suspect]
     Indication: ATTENTION DEFICIT/HYPERACTIVITY DISORDER
     Dosage: 60 MG/DAY
     Dates: start: 20030801
  2. ZOLOFT [Concomitant]
  3. ADDERALL [Concomitant]

REACTIONS (5)
  - ANGER [None]
  - ANXIETY [None]
  - DEPRESSION [None]
  - EDUCATIONAL PROBLEM [None]
  - IRRITABILITY [None]
